FAERS Safety Report 6263942-0 (Version None)
Quarter: 2009Q3

REPORT INFORMATION
  Report Type: 
  Country: None (occurrence: None)
  Receive Date: 20090710
  Receipt Date: 20090707
  Transmission Date: 20100115
  Serious: Yes (Other)
  Sender: FDA-Public Use
  Company Number: US-ROXANE LABORATORIES, INC.-2009-RO-00662RO

PATIENT
  Age: 32 Year
  Sex: Male

DRUGS (2)
  1. METHADONE HCL [Suspect]
     Indication: DRUG WITHDRAWAL MAINTENANCE THERAPY
     Dosage: 60 MG
  2. BUPRENORPHINE HCL [Concomitant]
     Indication: DRUG WITHDRAWAL MAINTENANCE THERAPY
     Dosage: 12 MG

REACTIONS (3)
  - PERFORMANCE STATUS DECREASED [None]
  - SEDATION [None]
  - SOMNOLENCE [None]
